FAERS Safety Report 22803239 (Version 15)
Quarter: 2024Q4

REPORT INFORMATION
  Report Type: Report from Study
  Country: JP (occurrence: JP)
  Receive Date: 20230809
  Receipt Date: 20241108
  Transmission Date: 20250114
  Serious: Yes (Hospitalization, Disabling, Other)
  Sender: JOHNSON AND JOHNSON
  Company Number: JP-JNJFOC-20230816992

PATIENT
  Age: 69 Year
  Sex: Male
  Weight: 62 kg

DRUGS (37)
  1. SIRTURO [Suspect]
     Active Substance: BEDAQUILINE FUMARATE
     Indication: Pulmonary tuberculosis
     Dosage: DOSE UNKNOWN
     Route: 048
     Dates: start: 20230321, end: 20230403
  2. SIRTURO [Suspect]
     Active Substance: BEDAQUILINE FUMARATE
     Dosage: DOSE UNKNOWN
     Route: 048
     Dates: start: 20230405, end: 20240214
  3. SIRTURO [Suspect]
     Active Substance: BEDAQUILINE FUMARATE
     Route: 048
     Dates: start: 20240302, end: 20240409
  4. ZYVOX [Suspect]
     Active Substance: LINEZOLID
     Indication: Pulmonary tuberculosis
     Route: 048
     Dates: start: 20230321, end: 20230912
  5. ZYVOX [Suspect]
     Active Substance: LINEZOLID
     Route: 048
     Dates: start: 20240302, end: 20240409
  6. DELAMANID [Suspect]
     Active Substance: DELAMANID
     Indication: Pulmonary tuberculosis
     Route: 048
     Dates: start: 20230321, end: 20240214
  7. DELAMANID [Suspect]
     Active Substance: DELAMANID
     Route: 048
     Dates: start: 20240302, end: 20240409
  8. CYCLOSERINE [Suspect]
     Active Substance: CYCLOSERINE
     Indication: Pulmonary tuberculosis
     Route: 048
     Dates: start: 20230321, end: 20240214
  9. CYCLOSERINE [Suspect]
     Active Substance: CYCLOSERINE
     Route: 048
     Dates: start: 20240302, end: 20240321
  10. ETHIONAMIDE [Suspect]
     Active Substance: ETHIONAMIDE
     Indication: Pulmonary tuberculosis
     Route: 048
     Dates: start: 20230913, end: 20230918
  11. ETHIONAMIDE [Suspect]
     Active Substance: ETHIONAMIDE
     Route: 048
     Dates: start: 20230919, end: 20231126
  12. ETHIONAMIDE [Suspect]
     Active Substance: ETHIONAMIDE
     Route: 048
     Dates: start: 20231127, end: 20231220
  13. ETHIONAMIDE [Suspect]
     Active Substance: ETHIONAMIDE
     Route: 048
     Dates: start: 20231221, end: 20240214
  14. ETHIONAMIDE [Concomitant]
     Active Substance: ETHIONAMIDE
     Indication: Pulmonary tuberculosis
     Route: 048
     Dates: start: 20230913, end: 20230918
  15. ETHIONAMIDE [Concomitant]
     Active Substance: ETHIONAMIDE
     Route: 048
     Dates: start: 20230919, end: 20231126
  16. ETHIONAMIDE [Concomitant]
     Active Substance: ETHIONAMIDE
     Route: 048
     Dates: start: 20231127, end: 20231220
  17. ETHIONAMIDE [Concomitant]
     Active Substance: ETHIONAMIDE
     Route: 048
     Dates: start: 20231221, end: 20240214
  18. METHYLCOBALAMIN [Concomitant]
     Active Substance: METHYLCOBALAMIN
     Indication: Anaemia
     Route: 048
     Dates: start: 20230913, end: 20231220
  19. METHYLCOBALAMIN [Concomitant]
     Active Substance: METHYLCOBALAMIN
     Indication: Prophylaxis
     Route: 048
     Dates: end: 20240409
  20. FOLIC ACID [Concomitant]
     Active Substance: FOLIC ACID
     Indication: Anaemia
     Dosage: DOSE UNKNOWN
     Route: 048
     Dates: start: 20230913, end: 20231220
  21. FOLIC ACID [Concomitant]
     Active Substance: FOLIC ACID
     Dosage: DOSE UNKNOWN
     Route: 048
     Dates: start: 20240221, end: 20240226
  22. CLOFAZIMINE [Concomitant]
     Active Substance: CLOFAZIMINE
     Indication: Pulmonary tuberculosis
     Route: 048
     Dates: start: 20230321, end: 20240214
  23. CLOFAZIMINE [Concomitant]
     Active Substance: CLOFAZIMINE
     Route: 048
     Dates: start: 20240302, end: 20240409
  24. CYCLOSERINE [Concomitant]
     Active Substance: CYCLOSERINE
     Indication: Pulmonary tuberculosis
     Route: 048
     Dates: start: 20230321, end: 20240214
  25. GLIMEPIRIDE [Concomitant]
     Active Substance: GLIMEPIRIDE
     Indication: Type 2 diabetes mellitus
     Route: 048
     Dates: end: 20231220
  26. JARDIANCE [Concomitant]
     Active Substance: EMPAGLIFLOZIN
     Indication: Type 2 diabetes mellitus
     Route: 048
     Dates: end: 20231220
  27. JANUVIA [Concomitant]
     Active Substance: SITAGLIPTIN PHOSPHATE
     Indication: Type 2 diabetes mellitus
     Route: 048
     Dates: end: 20231220
  28. MAGNESIUM OXIDE [Concomitant]
     Active Substance: MAGNESIUM OXIDE
     Indication: Constipation
     Route: 048
     Dates: end: 20231220
  29. PYRIDOXAL [Concomitant]
     Active Substance: PYRIDOXAL
     Indication: Hypoaesthesia
     Route: 048
     Dates: start: 20230413, end: 20231220
  30. PYRIDOXAL [Concomitant]
     Active Substance: PYRIDOXAL
     Indication: Prophylaxis
     Route: 048
     Dates: end: 20240409
  31. POTASSIUM CHLORIDE [Concomitant]
     Active Substance: POTASSIUM CHLORIDE
     Indication: Hypokalaemia
     Route: 048
     Dates: start: 20231113, end: 20231220
  32. HUMAN RED BLOOD CELL [Concomitant]
     Active Substance: HUMAN RED BLOOD CELL
     Indication: Anaemia
     Dosage: DOSE UNKNOWN
     Route: 065
     Dates: start: 20230905, end: 20230907
  33. ZOSYN [Concomitant]
     Active Substance: PIPERACILLIN SODIUM\TAZOBACTAM SODIUM
     Indication: Pneumonia
     Route: 065
     Dates: start: 20231208, end: 20231215
  34. CALCIUM LACTATE [Concomitant]
     Active Substance: CALCIUM LACTATE
     Indication: Prophylaxis
     Route: 048
     Dates: start: 20240117, end: 20240213
  35. CALCIUM LACTATE [Concomitant]
     Active Substance: CALCIUM LACTATE
     Route: 048
     Dates: start: 20240214, end: 20240409
  36. AMINO ACIDS\DEXTROSE\ELECTROLYTES NOS\VITAMINS [Concomitant]
     Active Substance: AMINO ACIDS\DEXTROSE\ELECTROLYTES NOS\VITAMINS
     Indication: Prophylaxis
     Route: 065
     Dates: start: 20231228, end: 20240213
  37. AMINOSALICYLATE CALCIUM [Concomitant]
     Active Substance: AMINOSALICYLATE CALCIUM
     Indication: Pulmonary tuberculosis
     Route: 048
     Dates: start: 20240326, end: 20240409

REACTIONS (10)
  - Pneumonia [Recovered/Resolved]
  - Decreased appetite [Recovering/Resolving]
  - Electrocardiogram QT prolonged [Not Recovered/Not Resolved]
  - Movement disorder [Not Recovered/Not Resolved]
  - Anaemia [Recovered/Resolved]
  - Hypokalaemia [Recovering/Resolving]
  - Hypoaesthesia [Not Recovered/Not Resolved]
  - Muscular weakness [Not Recovered/Not Resolved]
  - Cognitive disorder [Recovered/Resolved with Sequelae]
  - Asthenia [Recovered/Resolved with Sequelae]

NARRATIVE: CASE EVENT DATE: 20230413
